FAERS Safety Report 7682226-7 (Version None)
Quarter: 2011Q3

REPORT INFORMATION
  Report Type: 
  Country: None (occurrence: None)
  Receive Date: 20110815
  Receipt Date: 20110810
  Transmission Date: 20111222
  Serious: No
  Sender: FDA-Public Use
  Company Number: US-PFIZER INC-2011091129

PATIENT
  Sex: Female
  Weight: 90.703 kg

DRUGS (2)
  1. ADVIL LIQUI-GELS [Suspect]
     Indication: RHINORRHOEA
  2. ADVIL LIQUI-GELS [Suspect]
     Indication: SINUS HEADACHE
     Dosage: UNK
     Route: 048
     Dates: start: 20110401

REACTIONS (1)
  - DRUG INEFFECTIVE [None]
